FAERS Safety Report 22340004 (Version 2)
Quarter: 2024Q4

REPORT INFORMATION
  Report Type: Report from Study
  Country: CA (occurrence: CA)
  Receive Date: 20230518
  Receipt Date: 20241022
  Transmission Date: 20250115
  Serious: Yes (Other)
  Sender: JAZZ
  Company Number: CA-JAZZ-2022-CA-005689

PATIENT
  Sex: Female

DRUGS (39)
  1. XYREM [Suspect]
     Active Substance: SODIUM OXYBATE
     Indication: Cataplexy
     Dosage: 2.25 GRAM, BID
     Route: 048
     Dates: start: 20110930
  2. XYREM [Suspect]
     Active Substance: SODIUM OXYBATE
     Dosage: 3 GRAM, BID
     Route: 048
     Dates: start: 2012
  3. XYREM [Suspect]
     Active Substance: SODIUM OXYBATE
     Dosage: 3.75 GRAM, BID
     Route: 048
     Dates: start: 20130422, end: 20180301
  4. XYREM [Suspect]
     Active Substance: SODIUM OXYBATE
     Dosage: 3.75 GRAM, BID
     Route: 048
     Dates: start: 201804
  5. ERYTHROMYCIN [Concomitant]
     Active Substance: ERYTHROMYCIN
     Indication: Product used for unknown indication
     Dosage: DOSE : UNKNOWN
  6. ERYTHROMYCIN [Concomitant]
     Active Substance: ERYTHROMYCIN
     Dosage: DOSE : UNKNOWN
  7. CLONAZEPAM [Concomitant]
     Active Substance: CLONAZEPAM
     Indication: Product used for unknown indication
     Dosage: 0.5 MG
  8. CLONAZEPAM [Concomitant]
     Active Substance: CLONAZEPAM
     Dosage: 0.5 MG
  9. XIIDRA [Concomitant]
     Active Substance: LIFITEGRAST
     Indication: Product used for unknown indication
     Dosage: 5 PERCENT
  10. XIIDRA [Concomitant]
     Active Substance: LIFITEGRAST
     Dosage: 5 PERCENT
  11. DEXILANT [Concomitant]
     Active Substance: DEXLANSOPRAZOLE
     Indication: Product used for unknown indication
     Dosage: UNK
  12. DEXILANT [Concomitant]
     Active Substance: DEXLANSOPRAZOLE
     Dosage: UNK
  13. ESCITALOPRAM [Concomitant]
     Active Substance: ESCITALOPRAM OXALATE
     Indication: Product used for unknown indication
     Dosage: DOSE : UNKNOWN
  14. ESCITALOPRAM [Concomitant]
     Active Substance: ESCITALOPRAM OXALATE
     Dosage: DOSE : UNKNOWN
  15. MYRBETRIQ [Concomitant]
     Active Substance: MIRABEGRON
     Indication: Product used for unknown indication
     Dosage: DOSE : UNKNOWN
  16. MYRBETRIQ [Concomitant]
     Active Substance: MIRABEGRON
     Dosage: DOSE : UNKNOWN
  17. ALERTEC [MODAFINIL] [Concomitant]
     Indication: Product used for unknown indication
     Dosage: 200 MG DAILY
  18. ALERTEC [MODAFINIL] [Concomitant]
     Dosage: 200 MG DAILY
  19. SYNTHROID [Concomitant]
     Active Substance: LEVOTHYROXINE SODIUM
     Indication: Product used for unknown indication
     Dosage: UNK
  20. SYNTHROID [Concomitant]
     Active Substance: LEVOTHYROXINE SODIUM
     Dosage: UNK
  21. OMEPRAZOLE [Concomitant]
     Active Substance: OMEPRAZOLE
     Indication: Product used for unknown indication
     Dosage: UNK, BID
  22. OMEPRAZOLE [Concomitant]
     Active Substance: OMEPRAZOLE
     Dosage: UNK, BID
  23. PROBACLAC [Concomitant]
     Indication: Product used for unknown indication
     Dosage: 1 CAPSULE
  24. PROBACLAC [Concomitant]
     Dosage: 1 CAPSULE
  25. REACTIN PM [Concomitant]
     Indication: Product used for unknown indication
     Dosage: 20 MILLIGRAM, QD
  26. REACTIN PM [Concomitant]
     Dosage: 20 MILLIGRAM, QD
  27. FISH OIL\OMEGA-3 FATTY ACIDS [Concomitant]
     Active Substance: FISH OIL\OMEGA-3 FATTY ACIDS
     Indication: Product used for unknown indication
  28. CALCIUM\VITAMIN D [Concomitant]
     Active Substance: CALCIUM\VITAMIN D
     Indication: Product used for unknown indication
     Dosage: UNK
  29. CALCIUM\VITAMIN D [Concomitant]
     Active Substance: CALCIUM\VITAMIN D
     Dosage: UNK
  30. FEMARELLE [Concomitant]
     Indication: Product used for unknown indication
     Dosage: UNK
  31. FEMARELLE [Concomitant]
     Dosage: UNK
  32. DOXYCYCLINE [Concomitant]
     Active Substance: DOXYCYCLINE
     Indication: Product used for unknown indication
  33. OCUNOX [OXYBUPROCAINE HYDROCHLORIDE] [Concomitant]
     Indication: Product used for unknown indication
     Dosage: UNK
  34. OCUNOX [OXYBUPROCAINE HYDROCHLORIDE] [Concomitant]
     Dosage: UNK
  35. GLYCINE MAX [Concomitant]
  36. LINUM USITATISSIMUM [Concomitant]
  37. LACTOBACILLUS ACIDOPHILUS;LACTOBACILLUS RHAMNOSUS;STREPTOCOCCUS THERMO [Concomitant]
  38. LIFITEGRAST [Concomitant]
     Active Substance: LIFITEGRAST
  39. FISH OIL\OMEGA-3 FATTY ACIDS [Concomitant]
     Active Substance: FISH OIL\OMEGA-3 FATTY ACIDS

REACTIONS (3)
  - Meningitis [Unknown]
  - Pain [Not Recovered/Not Resolved]
  - Malaise [Unknown]
